FAERS Safety Report 7108218-4 (Version None)
Quarter: 2010Q4

REPORT INFORMATION
  Report Type: 
  Country: None (occurrence: None)
  Receive Date: 20101117
  Receipt Date: 20101105
  Transmission Date: 20110411
  Serious: Yes (Other)
  Sender: FDA-Public Use
  Company Number: PHHY2010JP75128

PATIENT
  Sex: Male

DRUGS (2)
  1. AFINITOR [Suspect]
     Dosage: 5 MG, DAILY
     Route: 048
     Dates: start: 20101001
  2. SUTENT [Concomitant]
     Dosage: UNK

REACTIONS (4)
  - DERMATITIS [None]
  - METASTASES TO LIVER [None]
  - PLEURAL EFFUSION [None]
  - STOMATITIS [None]
